FAERS Safety Report 5194506-8 (Version None)
Quarter: 2006Q4

REPORT INFORMATION
  Report Type: 
  Country: None (occurrence: None)
  Receive Date: 20061222
  Receipt Date: 20061220
  Transmission Date: 20070319
  Serious: Yes (Death, Life-Threatening)
  Sender: FDA-Public Use
  Company Number: FRWYE904220DEC06

PATIENT
  Age: 73 Year
  Sex: Male

DRUGS (5)
  1. EFFEXOR [Suspect]
     Indication: BIPOLAR DISORDER
     Dosage: 100 MG 3X PER 1 DAY ORAL
     Route: 048
     Dates: end: 20060120
  2. DEBRIDAT (TRIMEBUTINE MALEATE, ,0) [Suspect]
     Indication: GASTROINTESTINAL DISORDER
     Dosage: 3 DOSE 1X PER 1 DAY ORAL
     Route: 048
     Dates: start: 20060117, end: 20060120
  3. MIRTAZAPINE [Suspect]
     Indication: BIPOLAR DISORDER
     Dosage: 45 MG TOTAL DAILY ORAL
     Route: 048
     Dates: end: 20060120
  4. LITHIUM CARBONATE [Suspect]
     Indication: BIPOLAR DISORDER
     Dosage: 1000 MG TOTAL DAILY ORAL
     Route: 048
     Dates: end: 20060120
  5. TERCIAN (CYCAMEMAZINE, ,0) [Suspect]
     Indication: BIPOLAR DISORDER
     Dosage: 25 MG 1X PER 1 DAY ORAL
     Route: 048
     Dates: end: 20060120

REACTIONS (5)
  - CARDIAC DISORDER [None]
  - GASTROINTESTINAL DISORDER [None]
  - MENTAL DISORDER [None]
  - NERVOUS SYSTEM DISORDER [None]
  - VOMITING [None]
